FAERS Safety Report 19297168 (Version 2)
Quarter: 2022Q2

REPORT INFORMATION
  Report Type: Report from Study
  Country: US (occurrence: US)
  Receive Date: 20210524
  Receipt Date: 20220623
  Transmission Date: 20220720
  Serious: Yes (Death, Hospitalization, Other)
  Sender: FDA-Public Use
  Company Number: US-ABBVIE-21P-163-3916352-00

PATIENT
  Age: 68 Year
  Sex: Male
  Weight: 78.5 kg

DRUGS (6)
  1. VENETOCLAX [Suspect]
     Active Substance: VENETOCLAX
     Indication: Diffuse large B-cell lymphoma
     Dosage: CYCLE 1 DAYS 4-8; CYCLES  2-6 DAYS 1-5
     Route: 048
     Dates: start: 20200810, end: 20201103
  2. RITUXIMAB [Concomitant]
     Active Substance: RITUXIMAB
     Indication: Diffuse large B-cell lymphoma
     Dosage: DAY 1
     Route: 042
  3. CYCLOPHOSPHAMIDE [Concomitant]
     Active Substance: CYCLOPHOSPHAMIDE
     Indication: Diffuse large B-cell lymphoma
     Dosage: DAY 1
     Route: 042
     Dates: start: 20200807, end: 20201030
  4. DOXORUBICIN HYDROCHLORIDE [Concomitant]
     Active Substance: DOXORUBICIN HYDROCHLORIDE
     Indication: Diffuse large B-cell lymphoma
     Dosage: DAY 1
     Route: 042
     Dates: start: 20200807, end: 20201030
  5. VINCRISTINE SULFATE [Concomitant]
     Active Substance: VINCRISTINE SULFATE
     Indication: Diffuse large B-cell lymphoma
     Dosage: TO A MAXIMUM OF 2MG ON DAY 1
     Route: 042
     Dates: start: 20200807, end: 20201030
  6. PREDNISONE [Concomitant]
     Active Substance: PREDNISONE
     Indication: Diffuse large B-cell lymphoma
     Dosage: DAYS 1-5
     Route: 048
     Dates: start: 20200807, end: 20201103

REACTIONS (4)
  - Pneumonia [Fatal]
  - Pneumonia [Recovered/Resolved]
  - Skin infection [Not Recovered/Not Resolved]
  - Febrile neutropenia [Not Recovered/Not Resolved]

NARRATIVE: CASE EVENT DATE: 20200925
